FAERS Safety Report 9805673 (Version 1)
Quarter: 2014Q1

REPORT INFORMATION
  Report Type: Spontaneous
  Country: US (occurrence: None)
  Receive Date: 20140108
  Receipt Date: 20140108
  Transmission Date: 20141002
  Serious: Yes (Hospitalization)
  Sender: FDA-Public Use
  Company Number: None

PATIENT
  Age: 6 Year
  Sex: Male
  Weight: 25.8 kg

DRUGS (13)
  1. CEFTRIAXONE [Suspect]
  2. AUGMENTIN ES-600 [Suspect]
  3. D51/2NS WITH 20 KC1/L [Concomitant]
  4. MORPHINE [Concomitant]
  5. KETOROLAC [Concomitant]
  6. AZITHROMYCIN [Concomitant]
  7. ACYCLOVIR [Concomitant]
  8. ZYRECT [Concomitant]
  9. HYDROXYUREA [Concomitant]
  10. FLOVENT [Concomitant]
  11. PSEUDROEPHENDRINE [Concomitant]
  12. BENADRYL [Concomitant]
  13. HYDROXYZINE [Concomitant]

REACTIONS (7)
  - Drug eruption [None]
  - Groin pain [None]
  - Penile pain [None]
  - Penile swelling [None]
  - Dysuria [None]
  - Oral disorder [None]
  - Penile haemorrhage [None]
